FAERS Safety Report 6367306-0 (Version None)
Quarter: 2009Q3

REPORT INFORMATION
  Report Type: 
  Country: None (occurrence: None)
  Receive Date: 20090921
  Receipt Date: 20090908
  Transmission Date: 20100115
  Serious: Yes (Other)
  Sender: FDA-Public Use
  Company Number: US-PFIZER INC-2009226833

PATIENT
  Sex: Female
  Weight: 61.22 kg

DRUGS (8)
  1. XALATAN [Suspect]
     Indication: OPEN ANGLE GLAUCOMA
     Dosage: 1 GTT, 1X/DAY IN EACH EYE
     Dates: start: 20070701
  2. TOBRADEX [Suspect]
     Indication: OCULAR HYPERAEMIA
  3. TRAVOPROST [Suspect]
     Dosage: UNK
     Dates: start: 20080701, end: 20090219
  4. INDERAL [Concomitant]
     Dosage: UNK
  5. HYDROCHLOROTHIAZIDE [Concomitant]
     Dosage: UNK
  6. SYNTHROID [Concomitant]
     Dosage: UNK
  7. POTASSIUM CHLORIDE [Concomitant]
     Dosage: UNK
  8. CALCIUM [Concomitant]
     Dosage: UNK

REACTIONS (12)
  - ASTHENOPIA [None]
  - CONJUNCTIVAL DISORDER [None]
  - CONJUNCTIVAL HYPERAEMIA [None]
  - CORNEAL DISORDER [None]
  - EYE PRURITUS [None]
  - EYE SWELLING [None]
  - HYPERTENSION [None]
  - INTRAOCULAR PRESSURE INCREASED [None]
  - LACRIMATION DECREASED [None]
  - OCULAR HYPERAEMIA [None]
  - REACTION TO PRESERVATIVES [None]
  - RETINAL HAEMORRHAGE [None]
